FAERS Safety Report 9271734 (Version 2)
Quarter: 2013Q4

REPORT INFORMATION
  Report Type: Spontaneous
  Country: BR (occurrence: BR)
  Receive Date: 20130506
  Receipt Date: 20131107
  Transmission Date: 20140711
  Serious: Yes (Other)
  Sender: FDA-Public Use
  Company Number: BR-BRISTOL-MYERS SQUIBB COMPANY-18848895

PATIENT
  Age: 64 Year
  Sex: Male

DRUGS (2)
  1. ONGLYZA TABS 5 MG [Suspect]
     Indication: DIABETES MELLITUS
     Dosage: MRNG?RESTARTED ON JUL/AUG13
     Route: 048
     Dates: start: 201209
  2. AMLODIPINE BESYLATE [Concomitant]
     Dosage: AT NT

REACTIONS (1)
  - Plasma cell myeloma [Recovered/Resolved]
